FAERS Safety Report 10142808 (Version 1)
Quarter: 2014Q2

REPORT INFORMATION
  Report Type: Spontaneous
  Country: GB (occurrence: None)
  Receive Date: 20140428
  Receipt Date: 20140428
  Transmission Date: 20141212
  Serious: Yes (Other)
  Sender: FDA-Public Use
  Company Number: AUR-APL-2014-04883

PATIENT
  Age: 21 Year
  Sex: Female
  Weight: 43 kg

DRUGS (3)
  1. FLUOXETINE (FLUOXETINE) [Suspect]
     Indication: PRODUCT USED FOR UNKNOWN INDICATION
  2. ACTIFED [Suspect]
     Indication: PRODUCT USED FOR UNKNOWN INDICATION
     Route: 048
  3. OMEPRAZOLE (OMEPRAZOLE) [Concomitant]

REACTIONS (3)
  - Hallucination [None]
  - Somnambulism [None]
  - Drug interaction [None]
